FAERS Safety Report 23632297 (Version 1)
Quarter: 2024Q1

REPORT INFORMATION
  Report Type: Report from Study
  Country: US (occurrence: US)
  Receive Date: 20240314
  Receipt Date: 20240314
  Transmission Date: 20240410
  Serious: Yes (Other)
  Sender: FDA-Public Use
  Company Number: US-ABBVIE-5675418

PATIENT
  Age: 58 Year
  Sex: Male

DRUGS (1)
  1. UBRELVY [Suspect]
     Active Substance: UBROGEPANT
     Indication: Product used for unknown indication
     Dosage: FORM STRENGTH: 50MG
     Route: 048
     Dates: start: 20200320

REACTIONS (3)
  - Brain operation [Unknown]
  - Ocular discomfort [Unknown]
  - Migraine [Unknown]

NARRATIVE: CASE EVENT DATE: 20230901
